FAERS Safety Report 25354904 (Version 1)
Quarter: 2025Q2

REPORT INFORMATION
  Report Type: Spontaneous
  Country: DE (occurrence: DE)
  Receive Date: 20250524
  Receipt Date: 20250524
  Transmission Date: 20250716
  Serious: Yes (Disabling, Other)
  Sender: ABBVIE
  Company Number: None

PATIENT
  Age: 64 Year
  Sex: Male
  Weight: 92 kg

DRUGS (1)
  1. IMBRUVICA [Suspect]
     Active Substance: IBRUTINIB
     Indication: Waldenstrom^s macroglobulinaemia
     Dosage: 1X TGL. 420 MG
     Route: 048
     Dates: start: 20241122, end: 20250414

REACTIONS (3)
  - Cardiotoxicity [Unknown]
  - Atrial fibrillation [Recovered/Resolved with Sequelae]
  - Myocardial injury [Recovered/Resolved with Sequelae]

NARRATIVE: CASE EVENT DATE: 20241129
